FAERS Safety Report 6911833-1 (Version None)
Quarter: 2010Q3

REPORT INFORMATION
  Report Type: 
  Country: None (occurrence: None)
  Receive Date: 20100806
  Receipt Date: 20070813
  Transmission Date: 20110219
  Serious: No
  Sender: FDA-Public Use
  Company Number: US-PFIZER INC-2006115066

PATIENT
  Sex: Male
  Weight: 72.57 kg

DRUGS (5)
  1. GLIPIZIDE [Suspect]
     Indication: TYPE 2 DIABETES MELLITUS
     Route: 048
  2. GEMFIBROZIL [Concomitant]
     Indication: BLOOD CHOLESTEROL INCREASED
     Dates: start: 20060701
  3. VITAMIN E [Concomitant]
  4. SAW PALMETTO [Concomitant]
     Indication: PROSTATIC DISORDER
  5. ACETYLSALICYLIC ACID SRT [Concomitant]

REACTIONS (3)
  - BLOOD GLUCOSE INCREASED [None]
  - DRUG INEFFECTIVE [None]
  - HYPERGLYCAEMIA [None]
